FAERS Safety Report 6042666 (Version 2)
Quarter: 2016Q1

REPORT INFORMATION
  Report Type: Spontaneous
  Country: DE (occurrence: DE)
  Receive Date: 20060510
  Receipt Date: 20160109
  Transmission Date: 20160526
  Serious: Yes (Other)
  Sender: FDA-Public Use
  Company Number: DE-BRISTOL-MYERS SQUIBB COMPANY-13257993

PATIENT
  Sex: Female

DRUGS (4)
  1. EDRONAX [Concomitant]
     Active Substance: REBOXETINE MESYLATE
     Indication: SCHIZOPHRENIA
     Dosage: 8 MG, UNK
     Route: 065
  2. LEVOTHYROXIN [Concomitant]
     Active Substance: LEVOTHYROXINE
     Indication: HYPOTHYROIDISM
     Dosage: 75 MG, UNK
     Route: 065
  3. ABILIFY [Suspect]
     Active Substance: ARIPIPRAZOLE
     Indication: SCHIZOPHRENIA
     Dosage: 20 MG, UNK
     Route: 065
  4. METOPROLOL. [Concomitant]
     Active Substance: METOPROLOL
     Indication: HYPERTENSION
     Route: 065

REACTIONS (3)
  - Abortion spontaneous [Unknown]
  - Uterine dilation and curettage [Unknown]
  - Pregnancy [Recovered/Resolved]
